FAERS Safety Report 9658419 (Version 1)
Quarter: 2013Q4

REPORT INFORMATION
  Report Type: Report from Study
  Country: DE (occurrence: DE)
  Receive Date: 20131030
  Receipt Date: 20131030
  Transmission Date: 20140711
  Serious: Yes (Other)
  Sender: FDA-Public Use
  Company Number: DE-B.I. PHARMACEUTICALS,INC./RIDGEFIELD-2013-BI-34547DE

PATIENT
  Age: 54 Year
  Sex: Male
  Weight: 55 kg

DRUGS (3)
  1. MICARDIS [Suspect]
     Dosage: 80/12.5
     Route: 048
     Dates: start: 20131023
  2. CITALOPRAM 20 [Suspect]
     Route: 048
     Dates: start: 20131023
  3. PANTOZOL 40 [Suspect]
     Route: 048
     Dates: start: 20131023

REACTIONS (5)
  - Suicide attempt [Unknown]
  - Somnolence [Unknown]
  - Vomiting [Unknown]
  - Blood pressure systolic decreased [Unknown]
  - Blood pressure diastolic decreased [Unknown]
